FAERS Safety Report 16660299 (Version 2)
Quarter: 2019Q3

REPORT INFORMATION
  Report Type: Spontaneous
  Country: US (occurrence: US)
  Receive Date: 20190802
  Receipt Date: 20190903
  Transmission Date: 20191004
  Serious: No
  Sender: FDA-Public Use
  Company Number: US-ASTRAZENECA-2019SE98222

PATIENT
  Age: 76 Year
  Sex: Female
  Weight: 81.6 kg

DRUGS (2)
  1. ROSUVASTATIN CALCIUM. [Suspect]
     Active Substance: ROSUVASTATIN CALCIUM
     Route: 048
  2. ROSUVASTATIN CALCIUM. [Suspect]
     Active Substance: ROSUVASTATIN CALCIUM
     Dosage: GENERIC
     Route: 048

REACTIONS (4)
  - Arthralgia [Unknown]
  - Rash [Unknown]
  - Dysstasia [Unknown]
  - Myalgia [Unknown]
